FAERS Safety Report 9522996 (Version 2)
Quarter: 2014Q1

REPORT INFORMATION
  Report Type: Spontaneous
  Country: US (occurrence: US)
  Receive Date: 20130913
  Receipt Date: 20140217
  Transmission Date: 20141002
  Serious: Yes (Death, Other)
  Sender: FDA-Public Use
  Company Number: US-MERCK-1309USA005903

PATIENT
  Sex: Female
  Weight: 88.89 kg

DRUGS (2)
  1. CYCLESSA [Suspect]
     Indication: PRODUCT USED FOR UNKNOWN INDICATION
     Dosage: UNK
     Route: 048
     Dates: start: 20100226
  2. VITAMINS (UNSPECIFIED) [Concomitant]

REACTIONS (7)
  - Pulmonary embolism [Fatal]
  - Visual impairment [Unknown]
  - Loss of consciousness [Unknown]
  - Fall [Unknown]
  - Menorrhagia [Unknown]
  - Chest pain [Recovered/Resolved]
  - Cardiac arrest [Not Recovered/Not Resolved]
